FAERS Safety Report 24062216 (Version 1)
Quarter: 2024Q3

REPORT INFORMATION
  Report Type: Spontaneous
  Country: ZA (occurrence: ZA)
  Receive Date: 20240708
  Receipt Date: 20240708
  Transmission Date: 20241016
  Serious: Yes (Hospitalization, Other)
  Sender: MYLAN
  Company Number: ZA-MYLANLABS-2024M1062956

PATIENT
  Age: 3 Year
  Sex: Female

DRUGS (1)
  1. PHENYTOIN SODIUM [Suspect]
     Active Substance: PHENYTOIN SODIUM
     Indication: Product used for unknown indication
     Dosage: UNK
     Route: 065

REACTIONS (5)
  - Disorientation [Unknown]
  - Muscle spasms [Unknown]
  - Aggression [Unknown]
  - Psychotic disorder [Unknown]
  - Vascular shunt [Unknown]
